FAERS Safety Report 7846624-0 (Version None)
Quarter: 2011Q4

REPORT INFORMATION
  Report Type: 
  Country: None (occurrence: None)
  Receive Date: 20111025
  Receipt Date: 20111012
  Transmission Date: 20120403
  Serious: Yes (Other)
  Sender: FDA-Public Use
  Company Number: PHHY2011JP91612

PATIENT

DRUGS (3)
  1. CYCLOSPORINE [Suspect]
     Indication: GRAFT VERSUS HOST DISEASE
  2. PREDNISOLONE [Concomitant]
     Dosage: UNK UKN, UNK
  3. CYCLOSPORINE [Suspect]
     Indication: STEM CELL TRANSPLANT
     Dosage: UNK UKN, UNK

REACTIONS (7)
  - VIRAL HAEMORRHAGIC CYSTITIS [None]
  - GRAFT VERSUS HOST DISEASE [None]
  - CYTOMEGALOVIRUS INFECTION [None]
  - HAEMATURIA [None]
  - HERPES ZOSTER [None]
  - ADENOVIRUS INFECTION [None]
  - BLADDER IRRITATION [None]
